FAERS Safety Report 9398477 (Version 1)
Quarter: 2013Q3

REPORT INFORMATION
  Report Type: Spontaneous
  Country: IT (occurrence: IT)
  Receive Date: 20130712
  Receipt Date: 20130712
  Transmission Date: 20140515
  Serious: Yes (Hospitalization)
  Sender: FDA-Public Use
  Company Number: PHHY2013IT072564

PATIENT
  Sex: Male

DRUGS (2)
  1. ALLOPURINOL [Suspect]
     Indication: HYPERURICAEMIA
     Dosage: 300 MG, QD
     Route: 048
     Dates: start: 20130619, end: 20130619
  2. IRBESARTAN HCT [Concomitant]

REACTIONS (2)
  - Hypertensive crisis [Recovering/Resolving]
  - Hypersensitivity [Recovering/Resolving]
